FAERS Safety Report 16263466 (Version 3)
Quarter: 2019Q2

REPORT INFORMATION
  Report Type: Spontaneous
  Country: CA (occurrence: CA)
  Receive Date: 20190502
  Receipt Date: 20190522
  Transmission Date: 20190711
  Serious: Yes (Hospitalization, Other)
  Sender: FDA-Public Use
  Company Number: CA-CELLTRION INC.-2019CA020511

PATIENT

DRUGS (10)
  1. SEPTRA [Concomitant]
     Active Substance: SULFAMETHOXAZOLE\TRIMETHOPRIM
     Dosage: UNK
     Route: 048
  2. PREDNISONE. [Concomitant]
     Active Substance: PREDNISONE
     Dosage: UNK
     Route: 048
  3. INFLECTRA [Suspect]
     Active Substance: INFLIXIMAB-DYYB
     Dosage: 600 MG, EVERY 2, 6 WEEKS THEN EVERY 8 WEEKS
     Route: 042
     Dates: start: 20190411
  4. AZATHIOPRINE. [Concomitant]
     Active Substance: AZATHIOPRINE
     Dosage: UNK
     Route: 048
  5. AZATHIOPRINE. [Concomitant]
     Active Substance: AZATHIOPRINE
     Dosage: UNK
     Route: 048
  6. PREDNISONE. [Concomitant]
     Active Substance: PREDNISONE
     Dosage: UNK
     Route: 048
  7. INFLECTRA [Suspect]
     Active Substance: INFLIXIMAB-DYYB
     Indication: COLITIS ULCERATIVE
     Dosage: 600 MG ON WEEK 0, 1, 6 AND THEN EVERY 8 WEEKS
     Route: 042
     Dates: start: 20190402, end: 20190402
  8. SEPTRA [Concomitant]
     Active Substance: SULFAMETHOXAZOLE\TRIMETHOPRIM
     Dosage: UNK
     Route: 048
  9. INFLECTRA [Suspect]
     Active Substance: INFLIXIMAB-DYYB
     Dosage: 600 MG, EVERY 2, 6 WEEKS THEN EVERY 8 WEEKS
     Route: 042
     Dates: start: 20190411
  10. INFLECTRA [Suspect]
     Active Substance: INFLIXIMAB-DYYB
     Dosage: 600 MG, EVERY 2, 6 WEEKS THEN EVERY 8 WEEKS
     Route: 042
     Dates: start: 20190411

REACTIONS (5)
  - Disease progression [Unknown]
  - Malaise [Not Recovered/Not Resolved]
  - Off label use [Unknown]
  - Weight decreased [Unknown]
  - Product use issue [Unknown]
